FAERS Safety Report 19222214 (Version 1)
Quarter: 2021Q2

REPORT INFORMATION
  Report Type: Spontaneous
  Country: GB (occurrence: GB)
  Receive Date: 20210506
  Receipt Date: 20210506
  Transmission Date: 20210717
  Serious: Yes (Other)
  Sender: FDA-Public Use
  Company Number: GB-SUN PHARMACEUTICAL INDUSTRIES LTD-2021R1-294485

PATIENT
  Age: 49 Year
  Sex: Female

DRUGS (2)
  1. CLINDAMYCIN. [Suspect]
     Active Substance: CLINDAMYCIN
     Indication: FUSOBACTERIUM INFECTION
     Dosage: 450 MILLIGRAM, QID
     Route: 048
  2. METRONIDAZOLE. [Suspect]
     Active Substance: METRONIDAZOLE
     Indication: FUSOBACTERIUM INFECTION
     Dosage: 400 MILLIGRAM, TID
     Route: 048

REACTIONS (1)
  - Disease progression [Unknown]
